FAERS Safety Report 4265466-9 (Version None)
Quarter: 2004Q1

REPORT INFORMATION
  Report Type: 
  Country: None (occurrence: None)
  Receive Date: 20040106
  Receipt Date: 20031219
  Transmission Date: 20041129
  Serious: Yes (Hospitalization, Other)
  Sender: FDA-Public Use
  Company Number: 200317353US

PATIENT
  Age: 20 Year
  Sex: Male
  Weight: 79.5 kg

DRUGS (3)
  1. LANTUS [Suspect]
     Indication: DIABETES MELLITUS INSULIN-DEPENDENT
     Dosage: 36 U HS SC
     Route: 058
  2. LANTUS [Suspect]
     Indication: DIABETES MELLITUS INSULIN-DEPENDENT
     Dosage: 26 U HS SC
     Route: 058
  3. HUMALOG [Concomitant]

REACTIONS (4)
  - BLOOD GLUCOSE DECREASED [None]
  - BRAIN NEOPLASM BENIGN [None]
  - DRUG INTERACTION [None]
  - PHARMACEUTICAL PRODUCT COMPLAINT [None]
